FAERS Safety Report 24094235 (Version 1)
Quarter: 2024Q3

REPORT INFORMATION
  Report Type: Spontaneous
  Country: CH (occurrence: CH)
  Receive Date: 20240716
  Receipt Date: 20240716
  Transmission Date: 20241016
  Serious: No
  Sender: ALKEM
  Company Number: CH-ALKEM LABORATORIES LIMITED-CH-ALKEM-2024-09315

PATIENT
  Age: 27 Year
  Sex: Female

DRUGS (2)
  1. TOPIRAMATE [Suspect]
     Active Substance: TOPIRAMATE
     Indication: Hypomania
     Dosage: 150 MILLIGRAM, QD  (TITRATION LASTED 6WEEKS)
     Route: 065
  2. TOPIRAMATE [Suspect]
     Active Substance: TOPIRAMATE
     Dosage: UNK, RECHALLENGED DOSE
     Route: 065

REACTIONS (1)
  - Panic attack [Recovered/Resolved]
